FAERS Safety Report 5662618-8 (Version None)
Quarter: 2008Q1

REPORT INFORMATION
  Report Type: 
  Country: None (occurrence: None)
  Receive Date: 20080313
  Receipt Date: 20080304
  Transmission Date: 20080703
  Serious: Yes (Other)
  Sender: FDA-Public Use
  Company Number: CA-JNJFOC-20080300999

PATIENT
  Sex: Female
  Weight: 49 kg

DRUGS (1)
  1. REMICADE [Suspect]
     Indication: CROHN'S DISEASE
     Dosage: 4 TOTAL DOSES
     Route: 042

REACTIONS (2)
  - CHEST X-RAY ABNORMAL [None]
  - DYSPNOEA EXERTIONAL [None]
